FAERS Safety Report 7281236-1 (Version None)
Quarter: 2011Q1

REPORT INFORMATION
  Report Type: 
  Country: None (occurrence: None)
  Receive Date: 20110208
  Receipt Date: 20110131
  Transmission Date: 20110831
  Serious: Yes (Death, Other)
  Sender: FDA-Public Use
  Company Number: CHPA2011US02100

PATIENT
  Age: 41 Year
  Sex: Male

DRUGS (6)
  1. DIPHENHYDRAMINE [Suspect]
  2. ALPRAZOLAM [Suspect]
  3. COCAINE [Suspect]
  4. PHENOBARBITAL TAB [Suspect]
  5. DIAZEPAM [Suspect]
  6. PHENYTOIN [Suspect]

REACTIONS (2)
  - CARDIO-RESPIRATORY ARREST [None]
  - ACCIDENTAL EXPOSURE [None]
